FAERS Safety Report 11236524 (Version 1)
Quarter: 2015Q3

REPORT INFORMATION
  Report Type: Spontaneous
  Country: GB (occurrence: GB)
  Receive Date: 20150702
  Receipt Date: 20150702
  Transmission Date: 20151125
  Serious: Yes (Other)
  Sender: FDA-Public Use
  Company Number: GB-009507513-1506GBR014106

PATIENT
  Age: 62 Year
  Sex: Male
  Weight: 76 kg

DRUGS (8)
  1. ACETAMINOPHEN. [Concomitant]
     Active Substance: ACETAMINOPHEN
  2. ATAZANAVIR [Concomitant]
     Active Substance: ATAZANAVIR
  3. CODEINE [Concomitant]
     Active Substance: CODEINE
  4. INDAPAMIDE. [Concomitant]
     Active Substance: INDAPAMIDE
  5. MIRTAZAPINE. [Suspect]
     Active Substance: MIRTAZAPINE
     Indication: BIPOLAR DISORDER
     Dosage: 15 MG, UNK
     Route: 048
     Dates: start: 20150522, end: 20150604
  6. LAMIVUDINE. [Concomitant]
     Active Substance: LAMIVUDINE
  7. RALTEGRAVIR POTASSIUM [Concomitant]
     Active Substance: RALTEGRAVIR POTASSIUM
  8. MIRTAZAPINE. [Suspect]
     Active Substance: MIRTAZAPINE
     Dosage: DOSE WAS REDUCED TO HALF DOSE
     Route: 048
     Dates: start: 201506

REACTIONS (6)
  - Mania [Recovered/Resolved]
  - Anger [Recovering/Resolving]
  - Anxiety [Not Recovered/Not Resolved]
  - Restlessness [Recovered/Resolved]
  - Migraine [Recovered/Resolved]
  - Disturbance in attention [Recovered/Resolved]

NARRATIVE: CASE EVENT DATE: 20150602
